FAERS Safety Report 14110808 (Version 1)
Quarter: 2017Q4

REPORT INFORMATION
  Report Type: Spontaneous
  Country: FR (occurrence: FR)
  Receive Date: 20171020
  Receipt Date: 20171020
  Transmission Date: 20180321
  Serious: Yes (Death)
  Sender: FDA-Public Use
  Company Number: FR-PFIZER INC-14717

PATIENT
  Age: 27 Year
  Sex: Male

DRUGS (2)
  1. PROPOFOL. [Suspect]
     Active Substance: PROPOFOL
     Dosage: THREE AMPULES OF PROPOFOL OF 20 ML (10 MG/ML)
  2. LIDOCAINE. [Concomitant]
     Active Substance: LIDOCAINE
     Indication: PAIN
     Dosage: SPRAY

REACTIONS (3)
  - Pancreatitis haemorrhagic [Fatal]
  - Acute pulmonary oedema [Fatal]
  - Drug abuse [Fatal]
